FAERS Safety Report 24196505 (Version 1)
Quarter: 2024Q3

REPORT INFORMATION
  Report Type: Report from Study
  Country: US (occurrence: US)
  Receive Date: 20240810
  Receipt Date: 20240810
  Transmission Date: 20241016
  Serious: Yes (Other)
  Sender: NOVITIUM PHARMA
  Company Number: US-NOVITIUMPHARMA-2024USNVP01522

PATIENT
  Sex: Male
  Weight: 12.57 kg

DRUGS (4)
  1. CARGLUMIC ACID [Suspect]
     Active Substance: CARGLUMIC ACID
     Indication: N-acetylglutamate synthase deficiency
     Route: 048
     Dates: start: 20240709
  2. KEPPRA [Concomitant]
     Active Substance: LEVETIRACETAM
     Indication: Product used for unknown indication
  3. LEVOCARNITINE [Concomitant]
     Active Substance: LEVOCARNITINE
     Indication: Product used for unknown indication
  4. CITRATE [Concomitant]
     Active Substance: CITRIC ACID MONOHYDRATE
     Indication: Product used for unknown indication

REACTIONS (1)
  - Epilepsy [Unknown]
